FAERS Safety Report 9246414 (Version 2)
Quarter: 2013Q2

REPORT INFORMATION
  Report Type: Spontaneous
  Country: US (occurrence: US)
  Receive Date: 20130422
  Receipt Date: 20130505
  Transmission Date: 20140414
  Serious: Yes (Death, Hospitalization, Other)
  Sender: FDA-Public Use
  Company Number: US200910005599

PATIENT
  Age: 71 Year
  Sex: Male

DRUGS (22)
  1. BYETTA PEN DISPOSABLE [Suspect]
     Route: 058
     Dates: end: 20070216
  2. BYETTA PEN DISPOSABLE [Suspect]
     Route: 058
     Dates: start: 20060110
  3. EXENATIDE UNK STRENGTH PEN, DISPOSABLE DEVICE [Concomitant]
  4. HUMALOG [Concomitant]
  5. LANTUS [Concomitant]
  6. ACTOS [Concomitant]
  7. FLOMAX [Concomitant]
  8. AVODART [Concomitant]
  9. TOPROL [Concomitant]
  10. VYTORIN [Concomitant]
  11. LISINOPRIL [Concomitant]
  12. CREON [Concomitant]
  13. FENOFIBRATE [Concomitant]
  14. PREVACID [Concomitant]
  15. XALATAN [Concomitant]
  16. CILOSTAZOL [Concomitant]
  17. TERAZOSIN [Concomitant]
  18. AVANDAMET [Concomitant]
  19. ASPIRIN [Concomitant]
  20. METOPROLOL [Concomitant]
  21. LIPITOR [Concomitant]
  22. AMOXIL [Concomitant]

REACTIONS (4)
  - Adenocarcinoma pancreas [Fatal]
  - Pancreatitis acute [Unknown]
  - Hospitalisation [Unknown]
  - Off label use [Unknown]
